FAERS Safety Report 9068473 (Version 1)
Quarter: 2013Q1

REPORT INFORMATION
  Report Type: Spontaneous
  Country: US (occurrence: None)
  Receive Date: 20130212
  Receipt Date: 20130212
  Transmission Date: 20140127
  Serious: No
  Sender: FDA-Public Use
  Company Number: None

PATIENT
  Sex: Female

DRUGS (2)
  1. ALDORIL [Suspect]
  2. ADDERALL [Suspect]

REACTIONS (1)
  - Intercepted drug prescribing error [None]
